FAERS Safety Report 5315397-8 (Version None)
Quarter: 2007Q2

REPORT INFORMATION
  Report Type: 
  Country: None (occurrence: None)
  Receive Date: 20070503
  Receipt Date: 20070425
  Transmission Date: 20071010
  Serious: Yes (Other)
  Sender: FDA-Public Use
  Company Number: PHEH2007US06306

PATIENT
  Age: 67 Year
  Sex: Female
  Weight: 75.283 kg

DRUGS (2)
  1. ZOMETA [Suspect]
     Indication: METASTASES TO BONE
     Dosage: 4 MG EVERY FOUR WEEKS
     Route: 042
     Dates: start: 20041230, end: 20060802
  2. XELODA [Concomitant]

REACTIONS (4)
  - DENTAL CARE [None]
  - GINGIVAL PAIN [None]
  - OSTEONECROSIS [None]
  - TOOTHACHE [None]
